FAERS Safety Report 18506773 (Version 1)
Quarter: 2020Q4

REPORT INFORMATION
  Report Type: Spontaneous
  Country: US (occurrence: US)
  Receive Date: 20201116
  Receipt Date: 20201116
  Transmission Date: 20210114
  Serious: Yes (Other)
  Sender: FDA-Public Use
  Company Number: US-PFIZER INC-2020350028

PATIENT
  Age: 74 Year
  Sex: Female
  Weight: 92.08 kg

DRUGS (14)
  1. ATENOLOL. [Concomitant]
     Active Substance: ATENOLOL
     Indication: CARDIAC DISORDER
     Dosage: 25 MG, 2X/DAY (25MG-1 IN THE MORNING AND 1 AT NIGHT)
  2. COENZYME Q10 [Concomitant]
     Active Substance: DIETARY SUPPLEMENT\UBIDECARENONE
     Dosage: 200 MG, 1X/DAY (IN THE MORNING )
  3. AMLODIPINE BESILATE [Concomitant]
     Active Substance: AMLODIPINE BESYLATE
     Indication: CARDIAC DISORDER
     Dosage: 2.5 MG, 1X/DAY (2.5MG-1 IN THE MORNING )
  4. LEVEMIR [Concomitant]
     Active Substance: INSULIN DETEMIR
     Indication: BLOOD INSULIN ABNORMAL
     Dosage: 70 IU, DAILY (40 UNITS IN THE MORNING AND 30 UNITS AT NIGHT )
  5. INLYTA [Suspect]
     Active Substance: AXITINIB
     Dosage: 5 MG, 2X/DAY (5MG-1 IN MORNING AND 1 AT NIGHT WITH 12 OUNCES OF WATER BY MOUTH)
     Route: 048
  6. ASPIRIN [ACETYLSALICYLIC ACID] [Concomitant]
     Active Substance: ASPIRIN
     Dosage: 81 MG, 1X/DAY (AT NIGHT )
  7. KEYTRUDA [Concomitant]
     Active Substance: PEMBROLIZUMAB
     Indication: IMMUNE SYSTEM DISORDER
     Dosage: UNK, (INFUSION)
  8. VITAMIN D3 [Concomitant]
     Active Substance: CHOLECALCIFEROL
     Dosage: 5000 IU, DAILY (3000 UNITS IN THE MORNING AND 2000 UNITS AT NIGHT)
  9. INLYTA [Suspect]
     Active Substance: AXITINIB
     Indication: NEOPLASM MALIGNANT
     Dosage: 5 MG
  10. LEVOTHYROXINE SODIUM. [Concomitant]
     Active Substance: LEVOTHYROXINE SODIUM
     Dosage: 100 UG, 1X/DAY (IN THE MORNING )
  11. OCUVITE [ASCORBIC ACID;RETINOL;TOCOPHEROL] [Concomitant]
     Indication: VITAMIN SUPPLEMENTATION
     Dosage: 1 UNK, 1X/DAY (1 AT NIGHT )
  12. ATORVASTATIN CALCIUM. [Concomitant]
     Active Substance: ATORVASTATIN CALCIUM
     Dosage: 40 MG, 1X/DAY (AT NIGHT )
  13. FLAXSEED OIL [LINUM USITATISSIMUM OIL] [Concomitant]
     Indication: SUPPLEMENTATION THERAPY
     Dosage: 1000 MG, 1X/DAY (IN THE MORNING )
  14. B1 VITAMIN [Concomitant]
     Dosage: 100 MG

REACTIONS (4)
  - Weight decreased [Unknown]
  - Memory impairment [Recovering/Resolving]
  - Fall [Recovered/Resolved with Sequelae]
  - Concussion [Recovering/Resolving]

NARRATIVE: CASE EVENT DATE: 2020
